FAERS Safety Report 21534464 (Version 1)
Quarter: 2022Q4

REPORT INFORMATION
  Report Type: Spontaneous
  Country: US (occurrence: US)
  Receive Date: 20221101
  Receipt Date: 20221101
  Transmission Date: 20230113
  Serious: Yes (Life-Threatening, Hospitalization, Other)
  Sender: FDA-Public Use
  Company Number: US-JUBILANT CADISTA PHARMACEUTICALS-2022JUB00396

PATIENT
  Age: 55 Year
  Sex: Female
  Weight: 52.9 kg

DRUGS (3)
  1. PREDNISONE [Suspect]
     Active Substance: PREDNISONE
     Indication: Immunosuppressant drug therapy
     Dosage: 5 MG, 1X/DAY
  2. MYCOPHENOLATE MOFETIL [Suspect]
     Active Substance: MYCOPHENOLATE MOFETIL
     Indication: Immunosuppressant drug therapy
     Dosage: 180 MG, EVERY 12 HOURS
  3. TACROLIMUS [Suspect]
     Active Substance: TACROLIMUS
     Indication: Immunosuppressant drug therapy
     Dosage: 0.5 MG, EVERY 12 HOURS

REACTIONS (4)
  - Pneumonia cryptococcal [Recovered/Resolved]
  - Meningitis cryptococcal [Recovered/Resolved]
  - Cryptococcosis [Recovered/Resolved]
  - Acute kidney injury [Recovering/Resolving]
